FAERS Safety Report 11185064 (Version 1)
Quarter: 2015Q2

REPORT INFORMATION
  Report Type: Spontaneous
  Country: GB (occurrence: GB)
  Receive Date: 20150612
  Receipt Date: 20150612
  Transmission Date: 20150821
  Serious: Yes (Other)
  Sender: FDA-Public Use
  Company Number: GB-PFIZER INC-2015191742

PATIENT
  Age: 42 Year
  Sex: Male
  Weight: 127 kg

DRUGS (5)
  1. ATORVASTATIN CALCIUM. [Suspect]
     Active Substance: ATORVASTATIN CALCIUM
     Dosage: UNK
     Dates: start: 20150521
  2. NATRILIX [Concomitant]
     Active Substance: INDAPAMIDE
     Dosage: 1 DF, 1X/DAY EACH MORNING
     Dates: start: 20150501
  3. CARBOMER [Concomitant]
     Active Substance: CARBOMER
     Dosage: AS DIRECTED
     Dates: start: 20140402
  4. DOXAZOSIN [Concomitant]
     Active Substance: DOXAZOSIN\DOXAZOSIN MESYLATE
     Dosage: 1 DF, 1X/DAY
     Dates: start: 20141027, end: 20150421
  5. ENALAPRIL [Concomitant]
     Active Substance: ENALAPRIL
     Dosage: 1 DF, 2X/DAY
     Dates: start: 20141027

REACTIONS (4)
  - Vision blurred [Recovered/Resolved]
  - Arthralgia [Recovered/Resolved]
  - Hyperhidrosis [Recovering/Resolving]
  - Paraesthesia [Recovered/Resolved]

NARRATIVE: CASE EVENT DATE: 20150521
